FAERS Safety Report 4349377-6 (Version None)
Quarter: 2004Q2

REPORT INFORMATION
  Report Type: 
  Country: None (occurrence: None)
  Receive Date: 20040428
  Receipt Date: 20040416
  Transmission Date: 20050107
  Serious: Yes (Life-Threatening, Hospitalization)
  Sender: FDA-Public Use
  Company Number: US-BRISTOL-MYERS SQUIBB COMPANY-12561619

PATIENT
  Age: 49 Year
  Sex: Female
  Weight: 109 kg

DRUGS (5)
  1. ABILIFY [Suspect]
     Indication: SCHIZOAFFECTIVE DISORDER
     Dates: start: 20040316, end: 20040322
  2. ABILIFY [Suspect]
     Indication: BIPOLAR DISORDER
     Dates: start: 20040316, end: 20040322
  3. ZYPREXA [Concomitant]
  4. DEPAKOTE [Concomitant]
  5. WELLBUTRIN SR [Concomitant]

REACTIONS (11)
  - BLOOD CREATINE PHOSPHOKINASE INCREASED [None]
  - BLOOD CREATININE INCREASED [None]
  - BLOOD GLUCOSE INCREASED [None]
  - BLOOD URINE [None]
  - DEHYDRATION [None]
  - LOSS OF CONSCIOUSNESS [None]
  - MYOGLOBIN URINE PRESENT [None]
  - PSYCHOTIC DISORDER [None]
  - RHABDOMYOLYSIS [None]
  - TREATMENT NONCOMPLIANCE [None]
  - URINE KETONE BODY PRESENT [None]
